FAERS Safety Report 6567381-4 (Version None)
Quarter: 2010Q1

REPORT INFORMATION
  Report Type: 
  Country: None (occurrence: None)
  Receive Date: 20100202
  Receipt Date: 20100128
  Transmission Date: 20100710
  Serious: Yes (Death, Other)
  Sender: FDA-Public Use
  Company Number: PHHY2009CA50211

PATIENT
  Age: 73 Year
  Sex: Female

DRUGS (4)
  1. CYCLOSPORINE [Suspect]
     Indication: RENAL TRANSPLANT
     Dosage: UNK
     Route: 048
     Dates: start: 19940101, end: 19950101
  2. AZATHIOPRINE [Suspect]
     Indication: RENAL TRANSPLANT
     Dosage: UNK
     Dates: start: 19940101
  3. PREDNISONE [Suspect]
     Indication: RENAL TRANSPLANT
     Dosage: UNK
     Dates: start: 19940101
  4. ANTI-THYMOCYTE GLOBULIN NOS [Concomitant]
     Indication: RENAL TRANSPLANT

REACTIONS (8)
  - ABDOMINAL MASS [None]
  - DIFFUSE LARGE B-CELL LYMPHOMA STAGE II [None]
  - EPSTEIN-BARR VIRUS ASSOCIATED LYMPHOPROLIFERATIVE DISORDER [None]
  - EPSTEIN-BARR VIRUS INFECTION [None]
  - LYMPHOCELE [None]
  - LYMPHOMA [None]
  - SEPSIS [None]
  - SKIN NODULE [None]
